FAERS Safety Report 18899184 (Version 16)
Quarter: 2025Q4

REPORT INFORMATION
  Report Type: Report from Study
  Country: US (occurrence: US)
  Receive Date: 20210216
  Receipt Date: 20251216
  Transmission Date: 20260117
  Serious: Yes (Hospitalization, Other)
  Sender: TAKEDA
  Company Number: US-TAKEDA-US202011084

PATIENT
  Age: 66 Year
  Sex: Male

DRUGS (9)
  1. HUMAN IMMUNOGLOBULIN G [Suspect]
     Active Substance: HUMAN IMMUNOGLOBULIN G
     Indication: Primary immunodeficiency syndrome
     Dosage: 5 GRAM
  2. HUMAN IMMUNOGLOBULIN G [Suspect]
     Active Substance: HUMAN IMMUNOGLOBULIN G
     Indication: Immunodeficiency common variable
     Dosage: 5 GRAM
  3. HUMAN IMMUNOGLOBULIN G [Suspect]
     Active Substance: HUMAN IMMUNOGLOBULIN G
     Dosage: UNK UNK, Q3WEEKS
  4. HUMAN IMMUNOGLOBULIN G [Suspect]
     Active Substance: HUMAN IMMUNOGLOBULIN G
     Dosage: 45 GRAM, Q3WEEKS
  5. HUMAN IMMUNOGLOBULIN G [Suspect]
     Active Substance: HUMAN IMMUNOGLOBULIN G
     Dosage: 45 GRAM, MONTHLY
  6. HUMAN IMMUNOGLOBULIN G [Suspect]
     Active Substance: HUMAN IMMUNOGLOBULIN G
     Dosage: UNK UNK, Q3WEEKS
  7. GAMMAGARD LIQUID [Suspect]
     Active Substance: HUMAN IMMUNOGLOBULIN G
     Indication: Immunodeficiency common variable
     Dosage: 45 GRAM
  8. GAMMAGARD LIQUID [Suspect]
     Active Substance: HUMAN IMMUNOGLOBULIN G
     Indication: Primary immunodeficiency syndrome
     Dosage: UNK
  9. MODERNA COVID-19 VACCINE [Suspect]
     Active Substance: ELASOMERAN
     Indication: COVID-19 immunisation
     Dosage: UNK

REACTIONS (33)
  - Hepatitis B [Unknown]
  - Arrhythmia [Unknown]
  - Lyme disease [Unknown]
  - Skin cancer [Unknown]
  - Loss of consciousness [Unknown]
  - Hepatitis C [Unknown]
  - Asthma [Unknown]
  - Blood calcium decreased [Unknown]
  - Blood magnesium decreased [Unknown]
  - Bowel movement irregularity [Unknown]
  - Fall [Unknown]
  - Depression [Unknown]
  - Enzyme level increased [Unknown]
  - Blood electrolytes increased [Unknown]
  - Vitamin D decreased [Unknown]
  - Dysphonia [Recovering/Resolving]
  - Limb injury [Recovering/Resolving]
  - Peripheral swelling [Recovering/Resolving]
  - Product use issue [Unknown]
  - Insurance issue [Unknown]
  - Pain [Unknown]
  - Insomnia [Unknown]
  - Blood pressure increased [Unknown]
  - Vomiting [Unknown]
  - Cough [Unknown]
  - Headache [Unknown]
  - Back pain [Unknown]
  - Fatigue [Unknown]
  - Contusion [Recovering/Resolving]
  - Influenza [Recovering/Resolving]
  - Urticaria [Unknown]
  - Sinusitis [Unknown]
  - Gastroenteritis viral [Recovering/Resolving]

NARRATIVE: CASE EVENT DATE: 20200501
